FAERS Safety Report 4314352-4 (Version None)
Quarter: 2004Q1

REPORT INFORMATION
  Report Type: 
  Country: None (occurrence: None)
  Receive Date: 20040308
  Receipt Date: 20040226
  Transmission Date: 20041129
  Serious: Yes (Death, Other)
  Sender: FDA-Public Use
  Company Number: 2003037875

PATIENT
  Age: 64 Year
  Sex: Male

DRUGS (1)
  1. VFEND [Suspect]
     Indication: FEBRILE NEUTROPENIA
     Dates: start: 20030101

REACTIONS (4)
  - ALANINE AMINOTRANSFERASE INCREASED [None]
  - ASPARTATE AMINOTRANSFERASE INCREASED [None]
  - CARDIOVASCULAR DISORDER [None]
  - SUDDEN DEATH [None]
